FAERS Safety Report 5030472-3 (Version None)
Quarter: 2006Q2

REPORT INFORMATION
  Report Type: 
  Country: None (occurrence: None)
  Receive Date: 20060620
  Receipt Date: 20060614
  Transmission Date: 20061013
  Serious: Yes (Hospitalization)
  Sender: FDA-Public Use
  Company Number: US-BOEHRINGER INGELHEIM PHARMACEUTICALS, INC.-2006-BP-06794BP

PATIENT
  Age: 35 Year
  Sex: Female

DRUGS (3)
  1. MIRAPEX [Suspect]
     Indication: RESTLESS LEGS SYNDROME
  2. BENEDRYL [Concomitant]
     Route: 048
  3. CYMBALTA [Concomitant]
     Route: 048

REACTIONS (2)
  - CONVERSION DISORDER [None]
  - NAUSEA [None]
